FAERS Safety Report 18116102 (Version 1)
Quarter: 2020Q3

REPORT INFORMATION
  Report Type: Spontaneous
  Country: US (occurrence: US)
  Receive Date: 20200805
  Receipt Date: 20200805
  Transmission Date: 20201103
  Serious: No
  Sender: FDA-Public Use
  Company Number: US-ASTRAZENECA-2020SE74094

PATIENT
  Age: 872 Month
  Sex: Male
  Weight: 117.9 kg

DRUGS (3)
  1. TRESIBA [Concomitant]
     Active Substance: INSULIN DEGLUDEC
     Indication: DIABETES MELLITUS
     Dosage: 80 UNITS
     Dates: start: 20181218
  2. JARDIANCE [Concomitant]
     Active Substance: EMPAGLIFLOZIN
     Indication: DIABETES MELLITUS
     Dosage: 25.0MG UNKNOWN
     Dates: start: 20190919
  3. BYDUREON BCISE [Suspect]
     Active Substance: EXENATIDE
     Indication: TYPE 2 DIABETES MELLITUS
     Route: 058
     Dates: start: 202001

REACTIONS (5)
  - Wrong technique in device usage process [Unknown]
  - Hypoacusis [Unknown]
  - Device malfunction [Unknown]
  - Product closure removal difficult [Unknown]
  - Needle issue [Unknown]

NARRATIVE: CASE EVENT DATE: 202001
